FAERS Safety Report 18947223 (Version 3)
Quarter: 2022Q2

REPORT INFORMATION
  Report Type: Spontaneous
  Country: JP (occurrence: JP)
  Receive Date: 20210226
  Receipt Date: 20220602
  Transmission Date: 20220721
  Serious: Yes (Life-Threatening, Hospitalization, Other)
  Sender: FDA-Public Use
  Company Number: JP-SA-2021SA048138

PATIENT
  Age: 51 Year
  Sex: Male

DRUGS (3)
  1. DOCETAXEL [Suspect]
     Active Substance: DOCETAXEL
     Indication: Gastric cancer
     Dosage: UNK UNK, QCY
     Route: 065
  2. GIMERACIL\OTERACIL\TEGAFUR [Suspect]
     Active Substance: GIMERACIL\OTERACIL\TEGAFUR
     Indication: Gastric cancer
     Route: 065
  3. NIVOLUMAB [Suspect]
     Active Substance: NIVOLUMAB
     Indication: Gastric cancer
     Dosage: UNK
     Route: 065

REACTIONS (11)
  - Staphylococcal infection [Recovering/Resolving]
  - Stevens-Johnson syndrome [Recovering/Resolving]
  - Erythema [Recovering/Resolving]
  - Blister [Recovering/Resolving]
  - Penile erosion [Recovering/Resolving]
  - Oral mucosa erosion [Recovering/Resolving]
  - Inflammatory marker increased [Recovering/Resolving]
  - Pyrexia [Recovering/Resolving]
  - Skin erosion [Recovering/Resolving]
  - Lip erosion [Recovering/Resolving]
  - Renal impairment [Recovering/Resolving]
